FAERS Safety Report 8297964-5 (Version None)
Quarter: 2012Q2

REPORT INFORMATION
  Report Type: 
  Country: None (occurrence: None)
  Receive Date: 20120419
  Receipt Date: 20120417
  Transmission Date: 20120825
  Serious: Yes (Other)
  Sender: FDA-Public Use
  Company Number: US-PFIZER INC-2012095489

PATIENT
  Sex: Female
  Weight: 61.224 kg

DRUGS (7)
  1. NITROSTAT [Suspect]
     Indication: CHEST PAIN
     Dosage: AS NEEDED
     Route: 048
  2. LIPITOR [Suspect]
     Indication: BLOOD CHOLESTEROL INCREASED
     Dosage: ONCE DAILY
     Route: 048
  3. INTERFERON BETA-1A [Concomitant]
     Indication: MULTIPLE SCLEROSIS
     Dosage: UNK
  4. NOVOLOG [Concomitant]
     Indication: DIABETES MELLITUS
     Dosage: UNK
  5. PROTONIX [Suspect]
     Indication: DYSPEPSIA
     Dosage: ONCE DAILY
     Route: 048
  6. PROTONIX [Suspect]
     Indication: ABDOMINAL PAIN UPPER
  7. LANTUS [Concomitant]
     Indication: DIABETES MELLITUS
     Dosage: UNK

REACTIONS (3)
  - CEREBROVASCULAR ACCIDENT [None]
  - BLOOD GLUCOSE INCREASED [None]
  - CONVULSION [None]
